FAERS Safety Report 15994055 (Version 1)
Quarter: 2019Q1

REPORT INFORMATION
  Report Type: Spontaneous
  Country: US (occurrence: US)
  Receive Date: 20190222
  Receipt Date: 20190222
  Transmission Date: 20190418
  Serious: Yes (Other)
  Sender: FDA-Public Use
  Company Number: US-IPCA LABORATORIES LIMITED-IPC-2019-US-000214

PATIENT

DRUGS (1)
  1. WARFARIN [Suspect]
     Active Substance: WARFARIN
     Indication: ATRIAL FIBRILLATION
     Dosage: UNK
     Route: 065

REACTIONS (5)
  - Subdural haematoma [Recovered/Resolved]
  - Toxicity to various agents [Unknown]
  - International normalised ratio increased [Recovered/Resolved]
  - Seizure [Recovered/Resolved]
  - Fall [Unknown]
